FAERS Safety Report 18554520 (Version 2)
Quarter: 2022Q4

REPORT INFORMATION
  Report Type: Spontaneous
  Country: US (occurrence: US)
  Receive Date: 20201127
  Receipt Date: 20221208
  Transmission Date: 20230113
  Serious: Yes (Death)
  Sender: FDA-Public Use
  Company Number: US-JNJFOC-20201020460

PATIENT
  Age: 88 Year
  Sex: Male
  Weight: 81.720 kg

DRUGS (1)
  1. IMODIUM [Suspect]
     Active Substance: LOPERAMIDE HYDROCHLORIDE
     Indication: Diarrhoea
     Route: 048
     Dates: start: 20200803, end: 20200829

REACTIONS (1)
  - Death [Fatal]

NARRATIVE: CASE EVENT DATE: 20200829
